FAERS Safety Report 6852659-7 (Version None)
Quarter: 2010Q3

REPORT INFORMATION
  Report Type: 
  Country: None (occurrence: None)
  Receive Date: 20100717
  Receipt Date: 20071119
  Transmission Date: 20110219
  Serious: No
  Sender: FDA-Public Use
  Company Number: US-PFIZER INC-2007099566

PATIENT
  Sex: Male
  Weight: 75.454 kg

DRUGS (2)
  1. CHANTIX [Suspect]
     Indication: SMOKING CESSATION THERAPY
     Dates: start: 20071101
  2. VALSARTAN [Concomitant]
     Indication: HYPERTENSION

REACTIONS (1)
  - HEADACHE [None]
